FAERS Safety Report 7500735-8 (Version None)
Quarter: 2011Q2

REPORT INFORMATION
  Report Type: 
  Country: None (occurrence: None)
  Receive Date: 20110524
  Receipt Date: 20110517
  Transmission Date: 20111010
  Serious: Yes (Death, Life-Threatening, Hospitalization)
  Sender: FDA-Public Use
  Company Number: GXKR2011DE01727

PATIENT
  Age: 90 Year
  Sex: Female
  Weight: 56 kg

DRUGS (12)
  1. METRONIDAZOLE [Suspect]
     Indication: CLOSTRIDIUM DIFFICILE COLITIS
     Dosage: 500 MG, TID
     Route: 048
     Dates: start: 20101228, end: 20110109
  2. ACETYLSALICYLIC ACID SRT [Concomitant]
     Indication: CORONARY ARTERY DISEASE
     Dosage: 100 MG, QD
     Route: 048
  3. UNACID PD ORAL [Suspect]
     Indication: TRACHEOBRONCHITIS
     Dosage: 750 MG, BID
     Route: 048
     Dates: start: 20101211, end: 20101221
  4. FENTANYL [Concomitant]
     Indication: BONE PAIN
     Dosage: 4.125 MG, Q72H
     Route: 062
  5. NORVASC [Concomitant]
     Indication: HYPERTENSION
     Dosage: 10 MG, QD
     Route: 048
  6. PANTOPRAZOLE [Concomitant]
     Indication: PROPHYLAXIS AGAINST GASTROINTESTINAL ULCER
     Dosage: 40 MG, QD
     Route: 048
  7. RULID [Suspect]
     Indication: TRACHEOBRONCHITIS
     Dosage: 300 MG, QD
     Route: 048
     Dates: start: 20101211, end: 20101221
  8. RAMIPRIL [Concomitant]
     Indication: HYPERTENSION
     Dosage: 5 MG, QD
     Route: 048
  9. CORANGIN ^CIBA-GEIGY^ [Concomitant]
     Indication: CORONARY ARTERY DISEASE
     Dosage: 40 MG, BID
     Route: 048
  10. TORSEMIDE [Concomitant]
     Indication: HYPERTENSION
     Dosage: 10 MG, QD
     Route: 048
  11. ISOSORBIDE DINITRATE [Concomitant]
     Indication: CORONARY ARTERY DISEASE
     Dosage: 20 MG, BID
     Route: 048
  12. HUMALOG [Concomitant]
     Indication: TYPE 2 DIABETES MELLITUS
     Dosage: 14 IU, QD
     Route: 058

REACTIONS (5)
  - RENAL FAILURE ACUTE [None]
  - DEHYDRATION [None]
  - CLOSTRIDIUM DIFFICILE COLITIS [None]
  - SEPSIS [None]
  - DIARRHOEA [None]
